FAERS Safety Report 26147531 (Version 1)
Quarter: 2025Q4

REPORT INFORMATION
  Report Type: Report from Study
  Country: JP (occurrence: JP)
  Receive Date: 20251211
  Receipt Date: 20251211
  Transmission Date: 20260118
  Serious: Yes (Other)
  Sender: ABBVIE
  Company Number: JP-TAKEDA-2025TJP011967

PATIENT
  Age: 83 Year
  Sex: Male

DRUGS (1)
  1. LEUPLIN [Suspect]
     Active Substance: LEUPROLIDE ACETATE
     Indication: Prostate cancer
     Dosage: 11.25 MILLIGRAM, EVERY THREE MONTH
     Route: 065
     Dates: end: 20251107

REACTIONS (2)
  - Injection site induration [Unknown]
  - Skin swelling [Unknown]

NARRATIVE: CASE EVENT DATE: 20251121
